FAERS Safety Report 4896451-1 (Version None)
Quarter: 2006Q1

REPORT INFORMATION
  Report Type: 
  Country: None (occurrence: None)
  Receive Date: 20060131
  Receipt Date: 20020528
  Transmission Date: 20060701
  Serious: Yes (Other)
  Sender: FDA-Public Use
  Company Number: PHHO2002VE11126

PATIENT
  Age: 52 Year
  Sex: Female

DRUGS (1)
  1. ZELMAC / HTF 919A [Suspect]

REACTIONS (1)
  - PANCREATITIS [None]
